FAERS Safety Report 13484012 (Version 1)
Quarter: 2017Q2

REPORT INFORMATION
  Report Type: Spontaneous
  Country: US (occurrence: US)
  Receive Date: 20170426
  Receipt Date: 20170426
  Transmission Date: 20170830
  Serious: No
  Sender: FDA-Public Use
  Company Number: US-BAYER-2017-074634

PATIENT
  Sex: Female

DRUGS (1)
  1. CLARITIN [Suspect]
     Active Substance: LORATADINE
     Indication: PRODUCT USED FOR UNKNOWN INDICATION
     Dosage: MOST OF THE TIME
     Route: 065

REACTIONS (5)
  - Oral pruritus [Unknown]
  - Skin irritation [Unknown]
  - Pruritus [Unknown]
  - Oral discomfort [Unknown]
  - Drug effect incomplete [Unknown]
